FAERS Safety Report 8184759-6 (Version None)
Quarter: 2012Q1

REPORT INFORMATION
  Report Type: 
  Country: None (occurrence: None)
  Receive Date: 20120305
  Receipt Date: 20120305
  Transmission Date: 20120608
  Serious: Yes (Other)
  Sender: FDA-Public Use
  Company Number: None

PATIENT
  Age: 33 Year
  Sex: Male
  Weight: 90.718 kg

DRUGS (1)
  1. ZYRTEC [Suspect]
     Indication: HYPERSENSITIVITY
     Dosage: 10MG
     Route: 048
     Dates: start: 20050901, end: 20110703

REACTIONS (5)
  - URTICARIA [None]
  - NO THERAPEUTIC RESPONSE [None]
  - DRUG EFFECT DECREASED [None]
  - SKIN DISORDER [None]
  - PRURITUS [None]
